FAERS Safety Report 26023972 (Version 1)
Quarter: 2025Q4

REPORT INFORMATION
  Report Type: Spontaneous
  Country: RU (occurrence: RU)
  Receive Date: 20251111
  Receipt Date: 20251111
  Transmission Date: 20260118
  Serious: Yes (Other)
  Sender: ROCHE
  Company Number: RU-ROCHE-10000430281

PATIENT
  Age: 73 Year
  Sex: Female

DRUGS (6)
  1. ATEZOLIZUMAB [Suspect]
     Active Substance: ATEZOLIZUMAB
     Indication: Bronchial carcinoma
     Route: 042
  2. ATEZOLIZUMAB [Suspect]
     Active Substance: ATEZOLIZUMAB
     Indication: Metastases to adrenals
     Route: 042
     Dates: start: 202211
  3. CARBOPLATIN [Suspect]
     Active Substance: CARBOPLATIN
     Indication: Bronchial carcinoma
     Dosage: AUC5 IV ON DAY 1
     Route: 042
  4. CARBOPLATIN [Suspect]
     Active Substance: CARBOPLATIN
     Indication: Metastases to adrenals
  5. ETOPOSIDE [Suspect]
     Active Substance: ETOPOSIDE
     Indication: Bronchial carcinoma
     Dosage: DOSE 100 MG/M2 IV ON DAYS 1, 2, 3
     Route: 042
  6. ETOPOSIDE [Suspect]
     Active Substance: ETOPOSIDE
     Indication: Metastases to adrenals

REACTIONS (2)
  - COVID-19 [Recovered/Resolved]
  - Hypothyroidism [Recovered/Resolved]
